FAERS Safety Report 4277745-X (Version None)
Quarter: 2004Q1

REPORT INFORMATION
  Report Type: 
  Country: None (occurrence: None)
  Receive Date: 20040121
  Receipt Date: 20040112
  Transmission Date: 20041129
  Serious: Yes (Hospitalization)
  Sender: FDA-Public Use
  Company Number: 2004GB00063

PATIENT
  Age: 93 Year
  Sex: Male

DRUGS (5)
  1. QUETIAPINE [Suspect]
     Indication: AGITATION
     Dosage: 25 MG PO
     Route: 048
     Dates: start: 20031204, end: 20031205
  2. BETAHISTINE [Concomitant]
  3. FLUOXETINE [Concomitant]
  4. TEMAZEPAM [Concomitant]
  5. MOVICOL [Concomitant]

REACTIONS (4)
  - COMA [None]
  - DEHYDRATION [None]
  - HYPOVENTILATION [None]
  - SOMNOLENCE [None]
